FAERS Safety Report 5671771-1 (Version None)
Quarter: 2008Q2

REPORT INFORMATION
  Report Type: 
  Country: None (occurrence: None)
  Receive Date: 20080227
  Receipt Date: 20070727
  Transmission Date: 20081010
  Serious: Yes (Other)
  Sender: FDA-Public Use
  Company Number: HQWYE296630JUL07

PATIENT
  Age: 37 Year
  Sex: Female

DRUGS (1)
  1. EFFEXOR [Suspect]

REACTIONS (2)
  - DRUG DISPENSING ERROR [None]
  - DRUG EFFECT DECREASED [None]
